FAERS Safety Report 7920129-0 (Version None)
Quarter: 2011Q4

REPORT INFORMATION
  Report Type: 
  Country: None (occurrence: None)
  Receive Date: 20111117
  Receipt Date: 20111111
  Transmission Date: 20120403
  Serious: Yes (Other)
  Sender: FDA-Public Use
  Company Number: MX-SANOFI-AVENTIS-2011SA074499

PATIENT
  Age: 39 Year
  Sex: Male
  Weight: 85 kg

DRUGS (1)
  1. LANTUS [Suspect]
     Indication: TYPE 2 DIABETES MELLITUS
     Route: 058
     Dates: start: 20080101

REACTIONS (2)
  - RETINAL DETACHMENT [None]
  - EYE HAEMORRHAGE [None]
